FAERS Safety Report 8905584 (Version 2)
Quarter: 2012Q4

REPORT INFORMATION
  Report Type: 
  Country: US (occurrence: US)
  Receive Date: 20121111
  Receipt Date: 20121120
  Transmission Date: 20130627
  Serious: Yes (Death, Hospitalization)
  Sender: FDA-Public Use
  Company Number: PHEH2012US022177

PATIENT
  Sex: Female

DRUGS (1)
  1. RECLAST [Suspect]
     Indication: SENILE OSTEOPOROSIS
     Dosage: 5 mg, yearly
     Route: 042

REACTIONS (14)
  - Acute respiratory failure [Fatal]
  - Rales [Fatal]
  - Rhonchi [Fatal]
  - Lethargy [Fatal]
  - Asthenia [Fatal]
  - Dyspnoea [Fatal]
  - Tachycardia [Fatal]
  - Pulmonary fibrosis [Fatal]
  - Peripheral coldness [Fatal]
  - Interstitial lung disease [Fatal]
  - General physical health deterioration [Fatal]
  - Chronic obstructive pulmonary disease [Fatal]
  - Metabolic encephalopathy [Fatal]
  - Pneumonia [Fatal]
